FAERS Safety Report 7441383-8 (Version None)
Quarter: 2011Q2

REPORT INFORMATION
  Report Type: 
  Country: None (occurrence: None)
  Receive Date: 20110428
  Receipt Date: 20110414
  Transmission Date: 20111010
  Serious: Yes (Hospitalization)
  Sender: FDA-Public Use
  Company Number: TW-RANBAXY-2011RR-43638

PATIENT
  Age: 36 Year
  Sex: Female
  Weight: 70 kg

DRUGS (3)
  1. RISPERIDONE [Suspect]
     Indication: SCHIZOPHRENIA, PARANOID TYPE
     Dosage: 4 MG, UNK
     Route: 048
     Dates: start: 20081030
  2. DEPOT FLUCAN [Suspect]
     Indication: DELUSION
     Dosage: 25 MG, FORTNIGHT
     Route: 030
     Dates: start: 20081216
  3. OLANZAPINE [Concomitant]
     Dosage: 10 MG, UNK

REACTIONS (2)
  - DRUG INTERACTION [None]
  - NEUROLEPTIC MALIGNANT SYNDROME [None]
